FAERS Safety Report 5106749-X (Version None)
Quarter: 2006Q3

REPORT INFORMATION
  Report Type: 
  Country: None (occurrence: None)
  Receive Date: 20060918
  Receipt Date: 20060906
  Transmission Date: 20061208
  Serious: Yes (Hospitalization)
  Sender: FDA-Public Use
  Company Number: US-AMGEN-US192660

PATIENT
  Sex: Female

DRUGS (3)
  1. KINERET [Suspect]
     Indication: RHEUMATOID ARTHRITIS
     Route: 058
     Dates: start: 20040601
  2. ENBREL [Suspect]
     Indication: RHEUMATOID ARTHRITIS
     Route: 065
     Dates: start: 20050705, end: 20051001
  3. ARAVA [Concomitant]
     Route: 065
     Dates: start: 20010101

REACTIONS (6)
  - BLOOD PRODUCT TRANSFUSION [None]
  - CARTILAGE INJURY [None]
  - CATARACT [None]
  - PHARYNGITIS STREPTOCOCCAL [None]
  - SKIN ULCER [None]
  - STAPHYLOCOCCAL INFECTION [None]
